FAERS Safety Report 17745604 (Version 1)
Quarter: 2020Q2

REPORT INFORMATION
  Report Type: Spontaneous
  Country: GB (occurrence: GB)
  Receive Date: 20200505
  Receipt Date: 20200505
  Transmission Date: 20200714
  Serious: Yes (Other)
  Sender: FDA-Public Use
  Company Number: GB-JNJFOC-20200431770

PATIENT
  Age: 42 Year
  Sex: Female
  Weight: 76.2 kg

DRUGS (1)
  1. PARACETAMOL [Suspect]
     Active Substance: ACETAMINOPHEN
     Indication: HEADACHE
     Route: 048
     Dates: start: 20200331, end: 20200331

REACTIONS (4)
  - Rash [Recovering/Resolving]
  - Sensation of foreign body [Recovering/Resolving]
  - Lip swelling [Not Recovered/Not Resolved]
  - Paraesthesia oral [Recovering/Resolving]

NARRATIVE: CASE EVENT DATE: 20200331
